FAERS Safety Report 24538948 (Version 1)
Quarter: 2024Q4

REPORT INFORMATION
  Report Type: Spontaneous
  Country: JP (occurrence: JP)
  Receive Date: 20241023
  Receipt Date: 20241023
  Transmission Date: 20250115
  Serious: Yes (Death, Other)
  Sender: NOVARTIS
  Company Number: JP-002147023-NVSJ2024JP011387

PATIENT
  Age: 69 Year
  Sex: Male

DRUGS (1)
  1. AFINITOR [Suspect]
     Active Substance: EVEROLIMUS
     Indication: Small intestine neuroendocrine tumour
     Dosage: UNK
     Route: 048

REACTIONS (3)
  - Small intestine neuroendocrine tumour [Fatal]
  - Malignant neoplasm progression [Fatal]
  - Metastases to lymph nodes [Fatal]
